FAERS Safety Report 15237545 (Version 1)
Quarter: 2018Q3

REPORT INFORMATION
  Report Type: Spontaneous
  Country: GB (occurrence: GB)
  Receive Date: 20180803
  Receipt Date: 20180803
  Transmission Date: 20181010
  Serious: Yes (Other)
  Sender: FDA-Public Use
  Company Number: GB-TEVA-2018-GB-934633

PATIENT
  Age: 52 Year
  Sex: Female
  Weight: 76.2 kg

DRUGS (2)
  1. OLANZAPINE. [Suspect]
     Active Substance: OLANZAPINE
     Route: 065
  2. LAMOTRIGINE. [Concomitant]
     Active Substance: LAMOTRIGINE

REACTIONS (4)
  - Sedation [Recovered/Resolved]
  - Fall [Recovered/Resolved]
  - Feeling of despair [Recovered/Resolved]
  - Abnormal weight gain [Recovering/Resolving]
